FAERS Safety Report 8962387 (Version 2)
Quarter: 2013Q1

REPORT INFORMATION
  Report Type: Spontaneous
  Country: US (occurrence: None)
  Receive Date: 20121213
  Receipt Date: 20130321
  Transmission Date: 20140127
  Serious: Yes (Disabling)
  Sender: FDA-Public Use
  Company Number: None

PATIENT
  Age: 81 Year
  Sex: Male
  Weight: 81.65 kg

DRUGS (1)
  1. AVASTIN [Suspect]
     Indication: MACULAR DEGENERATION
     Dates: start: 20121003

REACTIONS (6)
  - Eye irritation [None]
  - Eye infection [None]
  - Blindness [None]
  - Lacrimation increased [None]
  - Purulence [None]
  - Eye discharge [None]
